FAERS Safety Report 8362565-7 (Version None)
Quarter: 2012Q2

REPORT INFORMATION
  Report Type: 
  Country: None (occurrence: None)
  Receive Date: 20120514
  Receipt Date: 20120502
  Transmission Date: 20120825
  Serious: Yes (Life-Threatening, Hospitalization)
  Sender: FDA-Public Use
  Company Number: MCA-N-12-041

PATIENT
  Age: 60 Year
  Sex: Female

DRUGS (4)
  1. AMLODIPINE [Suspect]
     Indication: HYPERTENSION
     Dosage: 10 MG, BID + ORAL
     Route: 048
  2. NIFEDIPINE [Concomitant]
  3. METOPROLOL [Concomitant]
  4. ASPIRIN [Concomitant]

REACTIONS (7)
  - LACTIC ACIDOSIS [None]
  - ILEUS PARALYTIC [None]
  - TOXICITY TO VARIOUS AGENTS [None]
  - DRUG LEVEL ABOVE THERAPEUTIC [None]
  - RESPIRATORY FAILURE [None]
  - SELF-MEDICATION [None]
  - SHOCK [None]
